FAERS Safety Report 9834747 (Version 1)
Quarter: 2014Q1

REPORT INFORMATION
  Report Type: Report from Study
  Country: US (occurrence: US)
  Receive Date: 20140122
  Receipt Date: 20140122
  Transmission Date: 20141002
  Serious: Yes (Hospitalization)
  Sender: FDA-Public Use
  Company Number: US-NAPPMUNDI-USA-2014-0110345

PATIENT
  Age: 48 Year
  Sex: Female

DRUGS (1)
  1. OXY CR TAB [Suspect]
     Indication: OSTEOARTHRITIS
     Dosage: 80 MG, Q12H
     Route: 048
     Dates: start: 20131121

REACTIONS (1)
  - Investigation [Recovered/Resolved]
